FAERS Safety Report 9021299 (Version 1)
Quarter: 2013Q1

REPORT INFORMATION
  Report Type: Spontaneous
  Country: US (occurrence: US)
  Receive Date: 20130119
  Receipt Date: 20130119
  Transmission Date: 20140127
  Serious: No
  Sender: FDA-Public Use
  Company Number: US-ALLERGAN-1201891US

PATIENT
  Sex: Female

DRUGS (1)
  1. BOTOX COSMETIC [Suspect]
     Indication: SKIN WRINKLING
     Dosage: 36 UNITS, SINGLE; 20 GLABELLA AND 8 EACH TO CROWS FEET
     Route: 030
     Dates: start: 20111129, end: 20111129

REACTIONS (1)
  - Injection site reaction [Recovered/Resolved]
